FAERS Safety Report 7479730-3 (Version None)
Quarter: 2011Q2

REPORT INFORMATION
  Report Type: 
  Country: None (occurrence: None)
  Receive Date: 20110513
  Receipt Date: 20110509
  Transmission Date: 20111010
  Serious: Yes (Death)
  Sender: FDA-Public Use
  Company Number: US-ASTRAZENECA-2011SE18151

PATIENT
  Age: 16602 Day
  Sex: Male

DRUGS (3)
  1. SYMBICORT [Suspect]
     Indication: EMPHYSEMA
     Route: 055
  2. OTHER MEDICATIONS [Concomitant]
  3. SYMBICORT [Suspect]
     Indication: CHRONIC OBSTRUCTIVE PULMONARY DISEASE
     Route: 055

REACTIONS (1)
  - DEATH [None]
